FAERS Safety Report 16426138 (Version 1)
Quarter: 2019Q2

REPORT INFORMATION
  Report Type: Report from Study
  Country: BR (occurrence: BR)
  Receive Date: 20190613
  Receipt Date: 20190613
  Transmission Date: 20190711
  Serious: Yes (Other)
  Sender: FDA-Public Use
  Company Number: BR-JNJFOC-20190604147

PATIENT
  Sex: Female

DRUGS (2)
  1. STELARA [Suspect]
     Active Substance: USTEKINUMAB
     Indication: PSORIASIS
     Route: 058
     Dates: start: 20190212
  2. STELARA [Suspect]
     Active Substance: USTEKINUMAB
     Indication: RHEUMATIC DISORDER
     Route: 058
     Dates: start: 20190212

REACTIONS (3)
  - Cerebrovascular accident [Unknown]
  - Product dose omission [Unknown]
  - Rheumatoid arthritis [Not Recovered/Not Resolved]

NARRATIVE: CASE EVENT DATE: 2019
